FAERS Safety Report 18714598 (Version 1)
Quarter: 2021Q1

REPORT INFORMATION
  Report Type: Spontaneous
  Country: ES (occurrence: ES)
  Receive Date: 20210108
  Receipt Date: 20210108
  Transmission Date: 20210419
  Serious: Yes (Other)
  Sender: FDA-Public Use
  Company Number: ES-SUN PHARMACEUTICAL INDUSTRIES LTD-2020RR-274561

PATIENT
  Age: 75 Year
  Sex: Female

DRUGS (8)
  1. ATOZET 10 MG/40 MG COMPRIMIDOS RECUBIERTOS CON PELICULA , 30 COMPRI... [Concomitant]
     Indication: TYPE V HYPERLIPIDAEMIA
     Dosage: 1 DOSAGE FORM, DAILY
     Route: 048
     Dates: start: 20200214
  2. SERTRALINA CINFA  50 MG COMPRIMIDOS RECUBIERTOS CON PELICULA EFG , ... [Concomitant]
     Indication: PERSISTENT DEPRESSIVE DISORDER
     Dosage: 50 MILLIGRAM, DAILY
     Route: 048
     Dates: start: 20200306
  3. LOSARTAN NORMON 25 MG COMPRIMIDOS RECUBIERTOS CON PELICULA , 28 COM... [Concomitant]
     Indication: ESSENTIAL HYPERTENSION
     Dosage: 25 MILLIGRAM, DAILY
     Route: 048
     Dates: start: 20160614
  4. EUTIROX 50 MICROGRAMOS COMPRIMIDOS , 100 COMPRIMIDOS [Concomitant]
     Active Substance: LEVOTHYROXINE SODIUM
     Indication: HYPOTHYROIDISM
     Dosage: 50 MICROGRAM, DAILY
     Route: 048
     Dates: start: 20090429
  5. LEVEMIR FLEXPEN 100 U/ML SOLUCION INYECTABLE EN UNA PLUMA PRECARGAD... [Concomitant]
     Indication: TYPE 2 DIABETES MELLITUS
     Dosage: 58 INTERNATIONAL UNIT, DAILY, 58 UI/24 H (18 H)
     Route: 058
     Dates: start: 20141015
  6. EUTIROX 25 MICROGRAMOS COMPRIMIDOS , 100 COMPRIMIDOS [Concomitant]
     Indication: HYPOTHYROIDISM
     Dosage: 12 MICROGRAM, DAILY
     Route: 048
     Dates: start: 20190613
  7. FLATORIL 500 MICROGRAMOS/200 MG CAPSULAS DURAS , 45 CAPSULAS [Concomitant]
     Indication: DYSPEPSIA
     Dosage: 0.5 MILLIGRAM, TID
     Route: 048
     Dates: start: 20200123
  8. OMEPRAZOLE. [Suspect]
     Active Substance: OMEPRAZOLE
     Indication: DYSPEPSIA
     Dosage: 20 MILLIGRAM, DAILY
     Route: 048
     Dates: start: 20200821, end: 20201209

REACTIONS (1)
  - Diarrhoea [Recovering/Resolving]

NARRATIVE: CASE EVENT DATE: 20201102
